FAERS Safety Report 23854667 (Version 1)
Quarter: 2024Q2

REPORT INFORMATION
  Report Type: Spontaneous
  Country: CA (occurrence: None)
  Receive Date: 20240514
  Receipt Date: 20240514
  Transmission Date: 20240715
  Serious: Yes (Other)
  Sender: FDA-Public Use
  Company Number: 2024A107169

PATIENT
  Age: 56 Year
  Sex: Female

DRUGS (3)
  1. ESOMEPRAZOLE MAGNESIUM [Suspect]
     Active Substance: ESOMEPRAZOLE MAGNESIUM
     Indication: Product used for unknown indication
     Dosage: UNKNOWN
  2. WELIREG [Suspect]
     Active Substance: BELZUTIFAN
     Indication: Von Hippel-Lindau disease
     Route: 048
  3. PANTOPRAZOLE SODIUM [Concomitant]
     Active Substance: PANTOPRAZOLE SODIUM
     Indication: Product used for unknown indication
     Dosage: UNKNOWN

REACTIONS (4)
  - Anaemia [Unknown]
  - Drug interaction [Unknown]
  - Fall [Unknown]
  - Wound infection [Unknown]
